FAERS Safety Report 12250587 (Version 3)
Quarter: 2016Q4

REPORT INFORMATION
  Report Type: Report from Study
  Country: US (occurrence: US)
  Receive Date: 20160408
  Receipt Date: 20161024
  Transmission Date: 20170207
  Serious: Yes (Hospitalization, Other)
  Sender: FDA-Public Use
  Company Number: US-GILEAD-2016-0206462

PATIENT
  Age: 73 Year
  Sex: Male
  Weight: 108.84 kg

DRUGS (7)
  1. ASPIRIN                            /00002701/ [Concomitant]
     Active Substance: ASPIRIN
  2. IDELALISIB [Suspect]
     Active Substance: IDELALISIB
     Indication: LYMPHOCYTIC LEUKAEMIA
     Dosage: 150 MG, BID
     Route: 048
     Dates: start: 20160204, end: 201603
  3. IDELALISIB [Suspect]
     Active Substance: IDELALISIB
     Indication: LYMPHOMA
  4. RITUXIMAB [Concomitant]
     Active Substance: RITUXIMAB
     Indication: LYMPHOMA
  5. LIPITOR [Concomitant]
     Active Substance: ATORVASTATIN CALCIUM
     Route: 048
  6. LEVOTHYROXINE. [Concomitant]
     Active Substance: LEVOTHYROXINE
     Route: 048
  7. ATENOLOL. [Concomitant]
     Active Substance: ATENOLOL
     Route: 048

REACTIONS (4)
  - Respiratory failure [Unknown]
  - Pneumonitis [Recovered/Resolved]
  - Hypoxia [Recovered/Resolved]
  - Dyspnoea [Recovered/Resolved]

NARRATIVE: CASE EVENT DATE: 20160303
